FAERS Safety Report 8153608-4 (Version None)
Quarter: 2012Q1

REPORT INFORMATION
  Report Type: 
  Country: None (occurrence: None)
  Receive Date: 20120216
  Receipt Date: 20120216
  Transmission Date: 20120608
  Serious: Yes (Death)
  Sender: FDA-Public Use
  Company Number: None

PATIENT
  Age: 45 Year
  Sex: Male
  Weight: 66.6 kg

DRUGS (8)
  1. OFATUMUMAB 1000MG GSK [Suspect]
     Indication: DIFFUSE LARGE B-CELL LYMPHOMA
     Dosage: 1000 MG QWEEK IV
     Route: 042
     Dates: start: 20111215, end: 20120126
  2. VALTREX [Concomitant]
  3. DILAUDID [Concomitant]
  4. OMEPRAZOLE [Concomitant]
  5. OFATUMUMAB [Suspect]
  6. OFATUMUMAB [Suspect]
  7. MORPHINE [Concomitant]
  8. LOVENOX [Concomitant]

REACTIONS (2)
  - DIFFUSE LARGE B-CELL LYMPHOMA [None]
  - NEOPLASM PROGRESSION [None]
